FAERS Safety Report 7794212-7 (Version None)
Quarter: 2011Q4

REPORT INFORMATION
  Report Type: 
  Country: None (occurrence: None)
  Receive Date: 20111004
  Receipt Date: 20101006
  Transmission Date: 20120403
  Serious: No
  Sender: FDA-Public Use
  Company Number: US-VIIV HEALTHCARE LIMITED-A0885444A

PATIENT
  Age: 25 Year
  Sex: Male
  Weight: 88.6 kg

DRUGS (3)
  1. SELZENTRY [Suspect]
     Indication: HIV INFECTION
     Route: 048
     Dates: start: 20100729, end: 20100818
  2. TRUVADA [Suspect]
     Indication: HIV INFECTION
     Route: 048
     Dates: start: 20100729, end: 20100818
  3. UNKNOWN [Concomitant]

REACTIONS (1)
  - RASH MORBILLIFORM [None]
